FAERS Safety Report 8970896 (Version 2)
Quarter: 2013Q1

REPORT INFORMATION
  Report Type: Spontaneous
  Country: NL (occurrence: NL)
  Receive Date: 20121217
  Receipt Date: 20130130
  Transmission Date: 20140127
  Serious: Yes (Hospitalization)
  Sender: FDA-Public Use
  Company Number: NL-US-EMD SERONO, INC.-7084439

PATIENT
  Age: 27 Year
  Sex: Female
  Weight: 120 kg

DRUGS (3)
  1. REBIF [Suspect]
     Indication: MULTIPLE SCLEROSIS
     Route: 058
     Dates: start: 20110815
  2. TRINORD/TRIGYNON (ETHINYLESTRADIOL/LEVONORGESTREL) [Concomitant]
     Indication: CONTRACEPTION
     Route: 048
  3. PARACETAMOL [Concomitant]
     Indication: ADVERSE EVENT
     Route: 048
     Dates: start: 20110815

REACTIONS (3)
  - Suicide attempt [Recovered/Resolved]
  - Menstrual disorder [Not Recovered/Not Resolved]
  - Influenza like illness [Not Recovered/Not Resolved]
